FAERS Safety Report 24210612 (Version 1)
Quarter: 2024Q3

REPORT INFORMATION
  Report Type: Spontaneous
  Country: IN (occurrence: IN)
  Receive Date: 20240814
  Receipt Date: 20240814
  Transmission Date: 20241016
  Serious: Yes (Other)
  Sender: SANOFI AVENTIS
  Company Number: IN-SA-2024SA236370

PATIENT
  Age: 52 Year
  Sex: Male

DRUGS (4)
  1. LEFLUNOMIDE [Suspect]
     Active Substance: LEFLUNOMIDE
     Indication: Rheumatoid arthritis
     Dosage: 100 MG, QD
  2. LEFLUNOMIDE [Suspect]
     Active Substance: LEFLUNOMIDE
     Dosage: 20 MG, QD
  3. IBUPROFEN [Concomitant]
     Active Substance: IBUPROFEN
     Indication: Rheumatoid arthritis
     Dosage: UNK
  4. OMEPRAZOLE [Concomitant]
     Active Substance: OMEPRAZOLE
     Indication: Rheumatoid arthritis
     Dosage: UNK

REACTIONS (14)
  - Dermatitis exfoliative [Recovered/Resolved]
  - Rash [Recovered/Resolved]
  - Pruritus [Recovered/Resolved]
  - Burning sensation [Recovered/Resolved]
  - Pyrexia [Recovered/Resolved]
  - Nausea [Recovered/Resolved]
  - Decreased appetite [Recovered/Resolved]
  - Erythema [Recovered/Resolved]
  - Hyperkeratosis [Recovered/Resolved]
  - Acanthosis [Recovered/Resolved]
  - Skin exfoliation [Recovered/Resolved]
  - Ectropion [Recovered/Resolved]
  - Eosinophilia [Recovered/Resolved]
  - Skin hyperpigmentation [Recovered/Resolved]
